FAERS Safety Report 10711710 (Version 1)
Quarter: 2015Q1

REPORT INFORMATION
  Report Type: Spontaneous
  Country: BR (occurrence: BR)
  Receive Date: 20150114
  Receipt Date: 20150114
  Transmission Date: 20150721
  Serious: Yes (Hospitalization)
  Sender: FDA-Public Use
  Company Number: BR-PFIZER INC-2015008129

PATIENT
  Age: 72 Year
  Sex: Female
  Weight: 70 kg

DRUGS (3)
  1. ECASIL (ACETYLSALICYLIC ACID) [Concomitant]
     Indication: BLOOD DISORDER
     Dosage: 1 TABLET, DAILY
     Dates: start: 2005
  2. CARDIZEM [Concomitant]
     Active Substance: DILTIAZEM HYDROCHLORIDE
     Indication: HYPERTENSION
     Dosage: 1 TABLET, DAILY
     Dates: start: 2005
  3. XALATAN [Suspect]
     Active Substance: LATANOPROST
     Route: 047

REACTIONS (4)
  - Spinal pain [Unknown]
  - Fall [Unknown]
  - Joint dislocation [Unknown]
  - Scoliosis [Not Recovered/Not Resolved]

NARRATIVE: CASE EVENT DATE: 201407
